FAERS Safety Report 15724306 (Version 2)
Quarter: 2019Q1

REPORT INFORMATION
  Report Type: Spontaneous
  Country: US (occurrence: US)
  Receive Date: 20181214
  Receipt Date: 20190206
  Transmission Date: 20190417
  Serious: No
  Sender: FDA-Public Use
  Company Number: US-GLAXOSMITHKLINE-US2018GSK224832

PATIENT
  Age: 45 Year
  Sex: Female

DRUGS (1)
  1. BENLYSTA [Suspect]
     Active Substance: BELIMUMAB
     Indication: SYSTEMIC LUPUS ERYTHEMATOSUS
     Dosage: UNK
     Route: 042

REACTIONS (4)
  - Stomatitis [Unknown]
  - Malaise [Unknown]
  - Arthralgia [Unknown]
  - Product dose omission [Unknown]

NARRATIVE: CASE EVENT DATE: 201810
